FAERS Safety Report 7515039-7 (Version None)
Quarter: 2011Q2

REPORT INFORMATION
  Report Type: 
  Country: None (occurrence: None)
  Receive Date: 20110601
  Receipt Date: 20110526
  Transmission Date: 20111010
  Serious: Yes (Life-Threatening)
  Sender: FDA-Public Use
  Company Number: PHHO2011FR09131

PATIENT
  Sex: Female
  Weight: 48 kg

DRUGS (6)
  1. GLEEVEC [Suspect]
     Indication: PULMONARY ARTERIAL HYPERTENSION
     Dosage: 200 MG, QD
     Dates: start: 20110407, end: 20110526
  2. ENOXAPARIN [Suspect]
  3. TRACLEER [Concomitant]
  4. REVATIO [Concomitant]
  5. FORLAX [Concomitant]
  6. DIFFU K [Concomitant]

REACTIONS (1)
  - SUBDURAL HAEMORRHAGE [None]
